FAERS Safety Report 9128880 (Version 2)
Quarter: 2013Q1

REPORT INFORMATION
  Report Type: Spontaneous
  Country: US (occurrence: US)
  Receive Date: 20130228
  Receipt Date: 20130329
  Transmission Date: 20140127
  Serious: Yes (Other)
  Sender: FDA-Public Use
  Company Number: US-009507513-1302USA012554

PATIENT
  Sex: Male

DRUGS (1)
  1. PROPECIA [Suspect]
     Indication: ANDROGENETIC ALOPECIA

REACTIONS (5)
  - Suicide attempt [Unknown]
  - Panic attack [Unknown]
  - Sexual dysfunction [Unknown]
  - Insomnia [Unknown]
  - Depression [Unknown]
